FAERS Safety Report 6507379-5 (Version None)
Quarter: 2009Q4

REPORT INFORMATION
  Report Type: 
  Country: None (occurrence: None)
  Receive Date: 20091221
  Receipt Date: 20091201
  Transmission Date: 20100525
  Serious: Yes (Hospitalization)
  Sender: FDA-Public Use
  Company Number: PL-ROCHE-674835

PATIENT
  Sex: Female

DRUGS (2)
  1. TRASTUZUMAB [Suspect]
     Dosage: TOTAL 40 DOSES RECEIVED, LAST DOSE PRIOR TO SAEON  06 NOVEMBER 2009.
     Route: 042
     Dates: start: 20090109
  2. PACLITAXEL [Suspect]
     Dosage: TOTAL 37 DOSES, LAST DOSE PRIOR TO SAE ON 18 SEP 2009
     Route: 042
     Dates: start: 20090109

REACTIONS (1)
  - CHOLELITHIASIS [None]
